FAERS Safety Report 5472130-7 (Version None)
Quarter: 2007Q3

REPORT INFORMATION
  Report Type: 
  Country: None (occurrence: None)
  Receive Date: 20070928
  Receipt Date: 20070920
  Transmission Date: 20080115
  Serious: Yes (Hospitalization)
  Sender: FDA-Public Use
  Company Number: US-MERCK-0709USA04372

PATIENT
  Age: 73 Year
  Sex: Male

DRUGS (4)
  1. PROSCAR [Suspect]
     Route: 048
  2. CARDURA [Suspect]
     Route: 065
  3. ZOCOR [Concomitant]
     Route: 065
  4. [THERAPY UNSPECIFIED] [Concomitant]
     Route: 065

REACTIONS (1)
  - HYPOTENSION [None]
